FAERS Safety Report 5142290-6 (Version None)
Quarter: 2006Q4

REPORT INFORMATION
  Report Type: 
  Country: None (occurrence: None)
  Receive Date: 20061027
  Receipt Date: 20061011
  Transmission Date: 20070319
  Serious: Yes (Other)
  Sender: FDA-Public Use
  Company Number: C-06-0057

PATIENT
  Age: 2 Month
  Sex: Male
  Weight: 4.9896 kg

DRUGS (1)
  1. NYSTATIN [Suspect]
     Indication: CANDIDIASIS
     Dosage: 2ML, ORALLY/6 HOURS; 2 DOSES
     Route: 048
     Dates: start: 20061010

REACTIONS (6)
  - DEVICE BREAKAGE [None]
  - DIARRHOEA [None]
  - HYPERSOMNIA [None]
  - PHARMACEUTICAL PRODUCT COMPLAINT [None]
  - SEPSIS [None]
  - VIRAL INFECTION [None]
